FAERS Safety Report 23213032 (Version 1)
Quarter: 2023Q4

REPORT INFORMATION
  Report Type: Spontaneous
  Country: US (occurrence: US)
  Receive Date: 20231121
  Receipt Date: 20231121
  Transmission Date: 20240110
  Serious: Yes (Death, Other)
  Sender: FDA-Public Use
  Company Number: US-ENDO-CASE-0045238

PATIENT
  Sex: Female

DRUGS (7)
  1. PERCOCET [Suspect]
     Active Substance: ACETAMINOPHEN\OXYCODONE HYDROCHLORIDE
  2. ALLEGRA [Suspect]
     Active Substance: FEXOFENADINE HYDROCHLORIDE
  3. OPANA [Suspect]
     Active Substance: OXYMORPHONE HYDROCHLORIDE
  4. METHADONE [Suspect]
     Active Substance: METHADONE HYDROCHLORIDE
  5. AMBIEN [Suspect]
     Active Substance: ZOLPIDEM TARTRATE
  6. PERIACTIN [Suspect]
     Active Substance: CYPROHEPTADINE HYDROCHLORIDE
  7. VALIUM [Suspect]
     Active Substance: DIAZEPAM

REACTIONS (2)
  - Death [Fatal]
  - Overdose [Unknown]
